FAERS Safety Report 22630180 (Version 1)
Quarter: 2023Q2

REPORT INFORMATION
  Report Type: Spontaneous
  Country: US (occurrence: US)
  Receive Date: 20230622
  Receipt Date: 20230622
  Transmission Date: 20230722
  Serious: No
  Sender: FDA-Public Use
  Company Number: US-JNJFOC-20230649562

PATIENT
  Age: 29 Year
  Sex: Female

DRUGS (3)
  1. SPRAVATO [Suspect]
     Active Substance: ESKETAMINE
     Indication: Depression
     Dosage: 56 TO 84 MG TWICE WEEKLY.
  2. SPRAVATO [Suspect]
     Active Substance: ESKETAMINE
     Indication: Anxiety
  3. SPRAVATO [Suspect]
     Active Substance: ESKETAMINE
     Indication: Post-traumatic stress disorder

REACTIONS (1)
  - Product dose omission issue [Unknown]

NARRATIVE: CASE EVENT DATE: 20230615
